FAERS Safety Report 6509191-X (Version None)
Quarter: 2009Q4

REPORT INFORMATION
  Report Type: 
  Country: None (occurrence: None)
  Receive Date: 20091221
  Receipt Date: 20090109
  Transmission Date: 20100525
  Serious: No
  Sender: FDA-Public Use
  Company Number: US-TYCO HEALTHCARE/MALLINCKRODT-T200900051

PATIENT
  Sex: Male

DRUGS (2)
  1. ULTRA-TECHNEKOW [Suspect]
     Indication: BONE SCAN
     Dosage: UNK
     Dates: start: 20090106, end: 20090106
  2. TECHNESCAN MDP [Suspect]
     Indication: BONE SCAN
     Dosage: UNK
     Dates: start: 20090106, end: 20090106

REACTIONS (2)
  - NAUSEA [None]
  - VOMITING [None]
